FAERS Safety Report 8361505-4 (Version None)
Quarter: 2012Q2

REPORT INFORMATION
  Report Type: 
  Country: None (occurrence: None)
  Receive Date: 20120515
  Receipt Date: 20120503
  Transmission Date: 20120825
  Serious: Yes (Hospitalization, Other)
  Sender: FDA-Public Use
  Company Number: FR-ELI_LILLY_AND_COMPANY-FR201205001015

PATIENT
  Sex: Female
  Weight: 74 kg

DRUGS (2)
  1. ZOPICLONE [Concomitant]
     Dosage: 1 DF, QD
  2. ZYPREXA [Suspect]
     Dosage: 15 MG, QD

REACTIONS (8)
  - PNEUMONIA ASPIRATION [None]
  - HYPERCHOLESTEROLAEMIA [None]
  - HYPERTRIGLYCERIDAEMIA [None]
  - HYPONATRAEMIA [None]
  - PYREXIA [None]
  - CENTRAL OBESITY [None]
  - TYPE 2 DIABETES MELLITUS [None]
  - HYPERTENSION [None]
